FAERS Safety Report 24637994 (Version 2)
Quarter: 2024Q4

REPORT INFORMATION
  Report Type: Spontaneous
  Country: US (occurrence: US)
  Receive Date: 20241119
  Receipt Date: 20241206
  Transmission Date: 20250115
  Serious: Yes (Death, Other)
  Sender: PFIZER
  Company Number: US-PFIZER INC-PV202400149425

PATIENT
  Age: 66 Year
  Sex: Female

DRUGS (1)
  1. TUKYSA [Suspect]
     Active Substance: TUCATINIB
     Dosage: 150 MG, (TWO TABLETS TWICE A DAY)/150 MG, TAKE TWO TABLETS BY MOUTH TWICE A DAY
     Route: 048

REACTIONS (2)
  - Death [Fatal]
  - Dizziness [Unknown]
